FAERS Safety Report 9203495 (Version 1)
Quarter: 2013Q2

REPORT INFORMATION
  Report Type: Spontaneous
  Country: US (occurrence: US)
  Receive Date: 20130402
  Receipt Date: 20130402
  Transmission Date: 20140414
  Serious: No
  Sender: FDA-Public Use
  Company Number: US-PFIZER INC-2013101364

PATIENT
  Age: 44 Year
  Sex: Female
  Weight: 61.68 kg

DRUGS (8)
  1. GABAPENTIN [Suspect]
     Indication: NEUROPATHY PERIPHERAL
     Dosage: 600 MG, 3X/DAY
     Route: 048
     Dates: start: 201302
  2. LISINOPRIL W/HYDROCHLOROTHIAZIDE [Concomitant]
     Indication: HYPERTENSION
     Dosage: 10/12.5 MG, 1X/DAY
  3. CLONIDINE [Concomitant]
     Indication: HYPERTENSION
     Dosage: 0.1 MG, 2X/DAY
  4. WARFARIN [Concomitant]
     Dosage: 2MG SIX DAYS IN A WEEK
  5. WARFARIN [Concomitant]
     Dosage: 4MG ONE DAY IN A WEEK
  6. METHADONE [Concomitant]
     Dosage: ONE AND HALF TABLET TWO TIMES A DAY AND ONE TABLET AT BED TIME
  7. AMITRIPTYLINE [Concomitant]
     Dosage: 50 MG (TWO 25MG ), 1X/DAY
  8. FLUVOXAMINE [Concomitant]
     Dosage: 100 MG(TWO 50MG), 1X/DAY

REACTIONS (2)
  - Drug ineffective [Unknown]
  - International normalised ratio abnormal [Unknown]
